FAERS Safety Report 16539459 (Version 1)
Quarter: 2019Q3

REPORT INFORMATION
  Report Type: Spontaneous
  Country: GB (occurrence: GB)
  Receive Date: 20190708
  Receipt Date: 20190708
  Transmission Date: 20191004
  Serious: Yes (Hospitalization, Other)
  Sender: FDA-Public Use
  Company Number: GB-TEVA-2019-GB-1072772

PATIENT
  Age: 90 Year
  Sex: Female
  Weight: 64 kg

DRUGS (18)
  1. SODIUM CROMOGLICATE [Concomitant]
     Active Substance: CROMOLYN SODIUM
     Dosage: 8 GTT
     Route: 047
     Dates: start: 20160506
  2. APIXABAN [Concomitant]
     Active Substance: APIXABAN
     Dosage: 2 DF
     Dates: start: 20190122
  3. CLINDAMYCIN. [Concomitant]
     Active Substance: CLINDAMYCIN
     Dosage: 8 DF
     Dates: start: 20190524, end: 20190531
  4. FERROUS FUMARATE [Concomitant]
     Active Substance: FERROUS FUMARATE
     Dosage: 3 DF
     Dates: start: 20160506
  5. PARACETAMOL [Concomitant]
     Active Substance: ACETAMINOPHEN
     Dosage: 8 DF
     Dates: start: 20190206
  6. LOPERAMIDE [Suspect]
     Active Substance: LOPERAMIDE
     Indication: DIARRHOEA
     Dosage: USE AS DIRECTED, 2 MG
     Dates: start: 20190524, end: 20190531
  7. QUININE [Concomitant]
     Active Substance: QUININE
     Dosage: AT NIGHT, 1 DF
     Dates: start: 20160506
  8. DOXYCYCLINE. [Concomitant]
     Active Substance: DOXYCYCLINE
     Dosage: TWO NOW THEN ONE DAILY
     Dates: start: 20190503, end: 20190510
  9. ADCAL [Concomitant]
     Dosage: 2 DF
     Dates: start: 20180717
  10. BISOPROLOL [Concomitant]
     Active Substance: BISOPROLOL
     Dosage: 1 DF
     Dates: start: 20181225
  11. CARBOMER 980 [Concomitant]
     Active Substance: CARBOMER HOMOPOLYMER TYPE C (ALLYL PENTAERYTHRITOL CROSSLINKED)
     Dosage: ONE TO EACH EYE, 6 GTT
     Route: 047
     Dates: start: 20160506
  12. DIGOXIN. [Concomitant]
     Active Substance: DIGOXIN
     Dosage: 1 DF
     Dates: start: 20181225
  13. METFORMIN [Concomitant]
     Active Substance: METFORMIN HYDROCHLORIDE
     Dosage: 8AM AND 6PM, 4 DF
     Dates: start: 20160506
  14. FLUCLOXACILLIN [Concomitant]
     Active Substance: FLUCLOXACILLIN
     Dosage: 4 DF
     Dates: start: 20190416, end: 20190430
  15. PERINDOPRIL TERT-BUTYLAMINE [Concomitant]
     Active Substance: PERINDOPRIL ERBUMINE
     Dosage: 1 DF
     Dates: start: 20161114
  16. FUROSEMIDE. [Concomitant]
     Active Substance: FUROSEMIDE
     Dosage: EACH MORNING (WATER TABLET), 1 DF
     Dates: start: 20190108
  17. OMEPRAZOLE. [Concomitant]
     Active Substance: OMEPRAZOLE
     Dosage: IN THE MORNING INSTEAD OF ONE FOR 7 DAYS, 2 DF
     Dates: start: 20160506
  18. SIMVASTATIN. [Concomitant]
     Active Substance: SIMVASTATIN
     Dosage: AT NIGHT, 1 DF
     Dates: start: 20160506

REACTIONS (8)
  - Drug hypersensitivity [Recovered/Resolved]
  - Hypotension [Recovered/Resolved]
  - Fatigue [Recovered/Resolved]
  - Pyrexia [Recovered/Resolved]
  - Rash generalised [Recovered/Resolved]
  - Nausea [Recovered/Resolved]
  - Dizziness [Recovered/Resolved]
  - Malaise [Recovered/Resolved]

NARRATIVE: CASE EVENT DATE: 20190607
